FAERS Safety Report 23362978 (Version 1)
Quarter: 2024Q1

REPORT INFORMATION
  Report Type: Spontaneous
  Country: US (occurrence: None)
  Receive Date: 20240103
  Receipt Date: 20240103
  Transmission Date: 20240409
  Serious: Yes (Other)
  Sender: FDA-Public Use
  Company Number: None

PATIENT
  Age: 56 Year
  Sex: Female
  Weight: 94.35 kg

DRUGS (6)
  1. REPATHA [Suspect]
     Active Substance: EVOLOCUMAB
     Indication: Low density lipoprotein decreased
     Dates: start: 20220324, end: 20230410
  2. OZEMPIC [Concomitant]
     Active Substance: SEMAGLUTIDE
  3. FENOFIBRATE [Concomitant]
     Active Substance: FENOFIBRATE
  4. Vitamin B12 Shot [Concomitant]
  5. Continuous Glucose Monitor (AIC is 6.5) [Concomitant]
  6. Vitamin D - 10,000 [Concomitant]

REACTIONS (23)
  - Brain fog [None]
  - Quality of life decreased [None]
  - Anxiety [None]
  - Inflammation [None]
  - Oedema peripheral [None]
  - Musculoskeletal discomfort [None]
  - Periarthritis [None]
  - Hypoaesthesia [None]
  - Neck pain [None]
  - Bursitis [None]
  - Vaginal haemorrhage [None]
  - Endometrial thickening [None]
  - Pain in extremity [None]
  - Arthralgia [None]
  - Myalgia [None]
  - Arthralgia [None]
  - Burning sensation [None]
  - Hypoaesthesia [None]
  - Headache [None]
  - Lung disorder [None]
  - Blood glucose increased [None]
  - Musculoskeletal disorder [None]
  - Therapy cessation [None]

NARRATIVE: CASE EVENT DATE: 20220324
